FAERS Safety Report 25158689 (Version 1)
Quarter: 2025Q2

REPORT INFORMATION
  Report Type: Spontaneous
  Country: GB (occurrence: GB)
  Receive Date: 20250404
  Receipt Date: 20250404
  Transmission Date: 20250716
  Serious: Yes (Other)
  Sender: SUNOVION
  Company Number: GB-MHRA-TPP19330234C12900624YC1742475569312

PATIENT

DRUGS (16)
  1. VIBEGRON [Suspect]
     Active Substance: VIBEGRON
     Indication: Ill-defined disorder
     Route: 065
     Dates: start: 20250122, end: 20250320
  2. AMLODIPINE [Concomitant]
     Active Substance: AMLODIPINE BESYLATE
     Indication: Ill-defined disorder
     Dosage: TAKE ONE TABLET ONCE A DAY
     Route: 065
     Dates: start: 20231210, end: 20250122
  3. ATORVASTATIN [Concomitant]
     Active Substance: ATORVASTATIN
     Indication: Ill-defined disorder
     Dosage: TAKE ONE TABLET ONCE A DAY TO HELP LOWER CHOLES...
     Route: 065
     Dates: start: 20231210
  4. CALCIUM\CHOLECALCIFEROL [Concomitant]
     Active Substance: CALCIUM\CHOLECALCIFEROL
     Indication: Ill-defined disorder
     Route: 065
     Dates: start: 20231210
  5. BECLOMETHASONE DIPROPIONATE [Concomitant]
     Active Substance: BECLOMETHASONE DIPROPIONATE
     Indication: Ill-defined disorder
     Route: 065
     Dates: start: 20231210, end: 20250122
  6. COCODAMOL [Concomitant]
     Active Substance: ACETAMINOPHEN\CODEINE PHOSPHATE
     Indication: Ill-defined disorder
     Route: 065
     Dates: start: 20231210
  7. DOXAZOSIN [Concomitant]
     Active Substance: DOXAZOSIN MESYLATE
     Indication: Ill-defined disorder
     Dosage: TAKE ONE TABLET ONCE A DAY
     Route: 065
     Dates: start: 20231210
  8. METFORMIN [Concomitant]
     Active Substance: METFORMIN HYDROCHLORIDE
     Indication: Ill-defined disorder
     Route: 065
     Dates: start: 20231210
  9. ACETAMINOPHEN\BUCLIZINE HYDROCHLORIDE\CODEINE [Concomitant]
     Active Substance: ACETAMINOPHEN\BUCLIZINE HYDROCHLORIDE\CODEINE
     Indication: Ill-defined disorder
     Route: 065
     Dates: start: 20231210
  10. OMEPRAZOLE [Concomitant]
     Active Substance: OMEPRAZOLE
     Indication: Ill-defined disorder
     Route: 065
     Dates: start: 20231210
  11. ALBUTEROL [Concomitant]
     Active Substance: ALBUTEROL
     Indication: Ill-defined disorder
     Route: 065
     Dates: start: 20231210
  12. SOLIFENACIN [Concomitant]
     Active Substance: SOLIFENACIN
     Indication: Ill-defined disorder
     Dosage: TAKE ONE TABLET ONCE A DAY
     Route: 065
     Dates: start: 20231210, end: 20250122
  13. VAGIRUX [Concomitant]
     Indication: Ill-defined disorder
     Route: 065
     Dates: start: 20231210
  14. GLICLAZIDE [Concomitant]
     Active Substance: GLICLAZIDE
     Indication: Ill-defined disorder
     Route: 065
     Dates: start: 20240205, end: 20250122
  15. EMPAGLIFLOZIN [Concomitant]
     Active Substance: EMPAGLIFLOZIN
     Indication: Ill-defined disorder
     Dosage: TAKE ONE TABLET ONCE A DAY TO HELP CONTROL DIAB...
     Route: 065
     Dates: start: 20250122
  16. TOLTERODINE TARTRATE [Concomitant]
     Active Substance: TOLTERODINE TARTRATE
     Indication: Ill-defined disorder
     Route: 065
     Dates: start: 20250320

REACTIONS (1)
  - Urinary incontinence [Recovered/Resolved]

NARRATIVE: CASE EVENT DATE: 20250320
